FAERS Safety Report 7014767 (Version 2)
Quarter: 2020Q3

REPORT INFORMATION
  Report Type: Spontaneous
  Country: IT (occurrence: IT)
  Receive Date: 20090609
  Receipt Date: 20090617
  Transmission Date: 20201104
  Serious: Yes (Disabling)
  Sender: FDA-Public Use
  Company Number: PHHY2009IT20838

PATIENT
  Age: 44 Year
  Sex: Female

DRUGS (5)
  1. NOLVADEX [Concomitant]
     Active Substance: TAMOXIFEN CITRATE
  2. ZOMETA [Suspect]
     Active Substance: ZOLEDRONIC ACID
     Indication: METASTASES TO BONE
     Dosage: 4 MG, UNK
     Route: 042
     Dates: start: 20050127, end: 20050618
  3. FEMARA [Concomitant]
     Active Substance: LETROZOLE
  4. IBANDRONIC ACID. [Suspect]
     Active Substance: IBANDRONIC ACID
     Indication: METASTASES TO BONE
     Dosage: 50 MG/DAY
     Route: 048
     Dates: start: 20050618, end: 20070618
  5. AROMASIN [Concomitant]
     Active Substance: EXEMESTANE

REACTIONS (4)
  - Osteitis [Not Recovered/Not Resolved]
  - Bone disorder [Not Recovered/Not Resolved]
  - Osteonecrosis [None]
  - Bone sequestrum [Not Recovered/Not Resolved]

NARRATIVE: CASE EVENT DATE: 20070415
